FAERS Safety Report 20877893 (Version 1)
Quarter: 2022Q2

REPORT INFORMATION
  Report Type: Spontaneous
  Country: US (occurrence: US)
  Receive Date: 20220526
  Receipt Date: 20220526
  Transmission Date: 20220721
  Serious: No
  Sender: FDA-Public Use
  Company Number: US-MYLANLABS-2022M1036585

PATIENT
  Age: 42 Year
  Sex: Male

DRUGS (2)
  1. DENAVIR [Suspect]
     Active Substance: PENCICLOVIR
     Indication: Product used for unknown indication
     Dosage: UNK, (STARTED USING THE PRODUCT TWO YEARS AGO)
     Route: 061
  2. DENAVIR [Suspect]
     Active Substance: PENCICLOVIR
     Dosage: UNK
     Route: 061
     Dates: start: 20220513

REACTIONS (2)
  - Expired product administered [Unknown]
  - No adverse event [Unknown]

NARRATIVE: CASE EVENT DATE: 20220513
